FAERS Safety Report 18241121 (Version 1)
Quarter: 2020Q3

REPORT INFORMATION
  Report Type: Other
  Country: FR (occurrence: FR)
  Receive Date: 20200908
  Receipt Date: 20200908
  Transmission Date: 20201103
  Serious: Yes (Other)
  Sender: FDA-Public Use
  Company Number: FR-APOTEX-2020AP017507

PATIENT
  Age: 67 Year
  Sex: Male

DRUGS (2)
  1. MELATONINE [Suspect]
     Active Substance: MELATONIN
     Indication: SLEEP DISORDER
     Dosage: 2 MILLIGRAM, QD
     Route: 048
     Dates: start: 20200731, end: 20200809
  2. PAROXETINE. [Suspect]
     Active Substance: PAROXETINE
     Indication: DEPRESSION
     Dosage: 20 MILLIGRAM, QD
     Route: 048
     Dates: start: 20200731

REACTIONS (2)
  - Hallucination [Recovered/Resolved]
  - Nightmare [Recovered/Resolved]

NARRATIVE: CASE EVENT DATE: 20200808
